FAERS Safety Report 4448083-7 (Version None)
Quarter: 2004Q3

REPORT INFORMATION
  Report Type: 
  Country: None (occurrence: None)
  Receive Date: 20040812
  Receipt Date: 20040622
  Transmission Date: 20050211
  Serious: No
  Sender: FDA-Public Use
  Company Number: USA040670865

PATIENT
  Age: 62 Year
  Sex: Male

DRUGS (13)
  1. CIALIS [Suspect]
  2. SYNTHROID [Concomitant]
  3. VIAGRA [Concomitant]
  4. FLECAINIDE ACETATE [Concomitant]
  5. ASPIRIN [Concomitant]
  6. MAGNESIUM [Concomitant]
  7. VITAMIN D [Concomitant]
  8. VITAMIN E [Concomitant]
  9. SELENIUM TRACE METAL ADDITIVE [Concomitant]
  10. LYCOPENE (LYCOPENE) [Concomitant]
  11. ACIPHEX [Concomitant]
  12. TESTOSTERONE [Concomitant]
  13. LIPITOR [Concomitant]

REACTIONS (5)
  - ERYTHEMA [None]
  - NODULE [None]
  - PAIN [None]
  - PRURITUS [None]
  - SKIN REACTION [None]
